FAERS Safety Report 10086890 (Version 1)
Quarter: 2014Q2

REPORT INFORMATION
  Report Type: Spontaneous
  Country: US (occurrence: US)
  Receive Date: 20140418
  Receipt Date: 20140418
  Transmission Date: 20141212
  Serious: Yes (Other)
  Sender: FDA-Public Use
  Company Number: PHHY2014US045391

PATIENT
  Age: 57 Year
  Sex: Male

DRUGS (5)
  1. GENTAMICIN [Suspect]
     Indication: ESCHERICHIA BACTERAEMIA
  2. AMPICILLIN [Concomitant]
     Indication: ENTEROCOCCAL INFECTION
  3. CEFTRIAXONE [Concomitant]
     Indication: ESCHERICHIA BACTERAEMIA
  4. DALFOPRISTIN W/QUINUPRISTIN [Concomitant]
     Indication: ESCHERICHIA BACTERAEMIA
     Dosage: 660 MG, Q8H
     Route: 042
  5. VANCOMYCIN [Concomitant]
     Indication: ENTEROCOCCAL INFECTION

REACTIONS (1)
  - Renal failure acute [Unknown]
